FAERS Safety Report 4543321-4 (Version None)
Quarter: 2004Q4

REPORT INFORMATION
  Report Type: 
  Country: None (occurrence: None)
  Receive Date: 20041230
  Receipt Date: 20041230
  Transmission Date: 20050328
  Serious: Yes (Other)
  Sender: FDA-Public Use
  Company Number: None

PATIENT
  Sex: Male
  Weight: 69.8539 kg

DRUGS (4)
  1. FORTEO [Suspect]
     Indication: OSTEOPOROSIS
     Dates: start: 20030701, end: 20041229
  2. TRANYLCYPROMINE [Concomitant]
  3. ZOLPIDEM [Concomitant]
  4. TAMULOSIN [Concomitant]

REACTIONS (1)
  - MAJOR DEPRESSION [None]
